FAERS Safety Report 11993832 (Version 1)
Quarter: 2016Q1

REPORT INFORMATION
  Report Type: Spontaneous
  Country: US (occurrence: US)
  Receive Date: 20160203
  Receipt Date: 20160203
  Transmission Date: 20160526
  Serious: Yes (Hospitalization, Other)
  Sender: FDA-Public Use
  Company Number: US-DRREDDYS-USA/USA/16/0068099

PATIENT
  Age: 8 Year
  Sex: Male

DRUGS (9)
  1. QUETIAPINE FUMARATE TABLETS [Interacting]
     Active Substance: QUETIAPINE FUMARATE
     Indication: AUTISM SPECTRUM DISORDER
     Dosage: 200 MG EVERY MORNING, 200 MG AT NOON AND 300 MG AT BEDTIME.
     Route: 065
  2. GUANFACINE HYDROCHLORIDE. [Suspect]
     Active Substance: GUANFACINE HYDROCHLORIDE
     Indication: AUTISM SPECTRUM DISORDER
     Route: 065
  3. BUPROPION. [Suspect]
     Active Substance: BUPROPION
     Indication: AUTISM SPECTRUM DISORDER
     Route: 065
  4. OXCARBAZEPINE. [Interacting]
     Active Substance: OXCARBAZEPINE
     Indication: AUTISM SPECTRUM DISORDER
     Route: 065
  5. CLONIDINE. [Concomitant]
     Active Substance: CLONIDINE
     Indication: AUTISM SPECTRUM DISORDER
     Route: 065
  6. RISPERIDONE TABLETS [Suspect]
     Active Substance: RISPERIDONE
     Indication: AUTISM SPECTRUM DISORDER
     Route: 065
  7. QUETIAPINE FUMARATE TABLETS [Interacting]
     Active Substance: QUETIAPINE FUMARATE
     Route: 065
  8. LAMOTRIGINE TABLETS [Suspect]
     Active Substance: LAMOTRIGINE
     Indication: AUTISM SPECTRUM DISORDER
     Route: 065
  9. ARIPIPRAZOLE. [Suspect]
     Active Substance: ARIPIPRAZOLE
     Indication: AUTISM SPECTRUM DISORDER
     Route: 065

REACTIONS (6)
  - Drug interaction [Unknown]
  - Weight increased [Unknown]
  - Agitation [Unknown]
  - Aggression [Recovered/Resolved]
  - Drug ineffective [Unknown]
  - Product quality issue [Unknown]
